FAERS Safety Report 4672908-3 (Version None)
Quarter: 2005Q2

REPORT INFORMATION
  Report Type: 
  Country: None (occurrence: None)
  Receive Date: 20050524
  Receipt Date: 20050510
  Transmission Date: 20051028
  Serious: Yes (Other)
  Sender: FDA-Public Use
  Company Number: GXKR2005US01030

PATIENT
  Age: 50 Year
  Sex: Male

DRUGS (2)
  1. METRONIDAZOLE [Suspect]
     Indication: HEPATIC ENCEPHALOPATHY
     Dosage: 500 MG TID ORAL
     Route: 048
  2. LACTULOSE [Concomitant]

REACTIONS (4)
  - CEREBELLAR ATAXIA [None]
  - DRUG TOXICITY [None]
  - DYSARTHRIA [None]
  - NUCLEAR MAGNETIC RESONANCE IMAGING ABNORMAL [None]
